FAERS Safety Report 7577786-0 (Version None)
Quarter: 2011Q2

REPORT INFORMATION
  Report Type: 
  Country: None (occurrence: None)
  Receive Date: 20110628
  Receipt Date: 20110616
  Transmission Date: 20111010
  Serious: Yes (Other)
  Sender: FDA-Public Use
  Company Number: US-ROCHE-765962

PATIENT
  Sex: Female
  Weight: 49.9 kg

DRUGS (2)
  1. ACCUTANE [Suspect]
     Dosage: ERY DAY
     Route: 048
     Dates: end: 20010716
  2. ACCUTANE [Suspect]
     Dosage: EVERY DAY
     Route: 048
     Dates: start: 20010108

REACTIONS (3)
  - IRRITABLE BOWEL SYNDROME [None]
  - ANAEMIA [None]
  - COLITIS ULCERATIVE [None]
